FAERS Safety Report 6114692-2 (Version None)
Quarter: 2009Q1

REPORT INFORMATION
  Report Type: 
  Country: None (occurrence: None)
  Receive Date: 20090311
  Receipt Date: 20080111
  Transmission Date: 20090719
  Serious: Yes (Other)
  Sender: FDA-Public Use
  Company Number: US200801002449

PATIENT
  Sex: Female

DRUGS (3)
  1. GEMZAR [Suspect]
     Indication: OVARIAN CANCER RECURRENT
     Dosage: OTHER, 2ND LINE TREATMENT
     Dates: start: 20061001, end: 20070301
  2. CARBOPLATIN [Concomitant]
  3. DEPAKOTE [Concomitant]

REACTIONS (1)
  - MALIGNANT NEOPLASM PROGRESSION [None]
